FAERS Safety Report 9596922 (Version 3)
Quarter: 2014Q1

REPORT INFORMATION
  Report Type: Spontaneous
  Country: GB (occurrence: GB)
  Receive Date: 20131004
  Receipt Date: 20140328
  Transmission Date: 20141002
  Serious: Yes (Death, Other)
  Sender: FDA-Public Use
  Company Number: PHHY2013GB107529

PATIENT
  Age: 39 Year
  Sex: Male

DRUGS (9)
  1. DIAZEPAM [Suspect]
     Indication: PRODUCT USED FOR UNKNOWN INDICATION
     Route: 065
  2. DIAZEPAM [Suspect]
     Route: 065
  3. OXYCONTIN [Suspect]
     Indication: PRODUCT USED FOR UNKNOWN INDICATION
     Route: 065
  4. CO-CODAMOL [Concomitant]
  5. FOSINOPRIL [Concomitant]
  6. MIRTAZAPINE [Concomitant]
  7. OLANZAPINE [Concomitant]
  8. COCAINE [Concomitant]
  9. AMPHETAMINE [Concomitant]

REACTIONS (4)
  - Pneumonia [Fatal]
  - Toxicity to various agents [Fatal]
  - Drug interaction [Fatal]
  - Convulsion [Recovered/Resolved]
